FAERS Safety Report 9761640 (Version 1)
Quarter: 2013Q4

REPORT INFORMATION
  Report Type: Spontaneous
  Country: NL (occurrence: None)
  Receive Date: 20131212
  Receipt Date: 20131212
  Transmission Date: 20140711
  Serious: Yes (Hospitalization)
  Sender: FDA-Public Use
  Company Number: IPC201311-000494

PATIENT
  Age: 50 Year
  Sex: Female

DRUGS (3)
  1. HYDROCHLOROTHIAZIDE [Suspect]
  2. DIHYDROTACHYSTEROL [Suspect]
  3. CALCIUM CARBONATE (CALCIUM CARBONATE) (CALCIUM CARBONATE) [Suspect]

REACTIONS (4)
  - Hypercalcaemia [None]
  - Renal failure acute [None]
  - Gastroenteritis [None]
  - Hypocalcaemia [None]
